FAERS Safety Report 5393853-4 (Version None)
Quarter: 2007Q3

REPORT INFORMATION
  Report Type: 
  Country: None (occurrence: None)
  Receive Date: 20070723
  Receipt Date: 20070718
  Transmission Date: 20080115
  Serious: Yes (Death, Hospitalization)
  Sender: FDA-Public Use
  Company Number: A0665347A

PATIENT
  Age: 74 Year
  Sex: Female
  Weight: 82 kg

DRUGS (2)
  1. LAPATINIB [Suspect]
     Dosage: 1500MG PER DAY
     Route: 048
     Dates: start: 20070601, end: 20070629
  2. GEMCITABINE HCL [Suspect]
     Dosage: 1GM2 WEEKLY
     Route: 048
     Dates: start: 20070531, end: 20070629

REACTIONS (5)
  - ANAEMIA [None]
  - ATRIAL FIBRILLATION [None]
  - PALPITATIONS [None]
  - PULMONARY EMBOLISM [None]
  - RENAL FAILURE ACUTE [None]
